FAERS Safety Report 17183506 (Version 1)
Quarter: 2019Q4

REPORT INFORMATION
  Report Type: Spontaneous
  Country: AU (occurrence: AU)
  Receive Date: 20191220
  Receipt Date: 20191220
  Transmission Date: 20200122
  Serious: Yes (Hospitalization)
  Sender: FDA-Public Use
  Company Number: AU-APOTEX-2019AP026280

PATIENT
  Age: 55 Year
  Sex: Female

DRUGS (15)
  1. MOXIFLOXACIN. [Suspect]
     Active Substance: MOXIFLOXACIN
     Indication: MYCOBACTERIUM ABSCESSUS INFECTION
     Dosage: UNK
     Route: 065
  2. CLOFAZIMINE [Suspect]
     Active Substance: CLOFAZIMINE
     Indication: ULCER
     Dosage: 100 MG, QD
     Route: 065
  3. TIGECYCLINE. [Concomitant]
     Active Substance: TIGECYCLINE
     Indication: ULCER
     Dosage: 100 MG, QD
     Route: 042
  4. CLARITHROMYCIN. [Concomitant]
     Active Substance: CLARITHROMYCIN
     Indication: ULCER
     Dosage: 500 MG, BID
     Route: 065
  5. LINEZOLID. [Concomitant]
     Active Substance: LINEZOLID
     Indication: ULCER
     Dosage: 400 MG, QD
     Route: 048
  6. IMIPENEM [Suspect]
     Active Substance: IMIPENEM
     Indication: MYCOBACTERIUM ABSCESSUS INFECTION
     Dosage: UNK
     Route: 065
  7. CLARITHROMYCIN. [Concomitant]
     Active Substance: CLARITHROMYCIN
     Indication: EVIDENCE BASED TREATMENT
  8. QUETIAPINE. [Suspect]
     Active Substance: QUETIAPINE
     Indication: INTERVERTEBRAL DISC PROTRUSION
     Dosage: 150 MG, QD
     Route: 065
  9. RIFAMPICIN [Concomitant]
     Active Substance: RIFAMPIN
     Indication: EVIDENCE BASED TREATMENT
     Dosage: UNK
     Route: 065
  10. QUETIAPINE. [Suspect]
     Active Substance: QUETIAPINE
     Dosage: 100 MG, QD
     Route: 065
  11. DOXYCYCLINE. [Suspect]
     Active Substance: DOXYCYCLINE
     Indication: ULCER
     Dosage: 100 MG, BID
     Route: 065
  12. COTRIMOXAZOLE [Suspect]
     Active Substance: SULFAMETHOXAZOLE\TRIMETHOPRIM
     Indication: MYCOBACTERIUM ABSCESSUS INFECTION
     Dosage: UNK
     Route: 065
  13. CEPHALEXIN                         /00145501/ [Concomitant]
     Active Substance: CEPHALEXIN
     Indication: ULCER
     Dosage: UNK
     Route: 048
  14. QUETIAPINE. [Suspect]
     Active Substance: QUETIAPINE
     Indication: BIPOLAR DISORDER
     Dosage: 50 MG, QD
     Route: 065
  15. RIFAMPICIN [Concomitant]
     Active Substance: RIFAMPIN
     Indication: ULCER

REACTIONS (2)
  - Drug resistance [Unknown]
  - Drug level decreased [Unknown]
